FAERS Safety Report 7618948-3 (Version None)
Quarter: 2011Q3

REPORT INFORMATION
  Report Type: 
  Country: None (occurrence: None)
  Receive Date: 20110718
  Receipt Date: 20110707
  Transmission Date: 20111222
  Serious: Yes (Hospitalization, Disabling)
  Sender: FDA-Public Use
  Company Number: CN-ASTRAZENECA-2011SE40684

PATIENT
  Age: 58 Year
  Sex: Female

DRUGS (6)
  1. LIDOCAINE [Suspect]
     Route: 037
  2. VITAMIN B-12 [Concomitant]
     Dosage: 10 MG
  3. PREDNISOLONE ACETATE [Concomitant]
  4. VITAMIN B [Concomitant]
     Dosage: 100 MG
  5. RACEMIC ANISODAMINE [Concomitant]
     Dosage: 5 G
  6. CORTICAL HORMONE [Concomitant]
     Dosage: SACRAL

REACTIONS (9)
  - HALLUCINATION, AUDITORY [None]
  - LOGORRHOEA [None]
  - URINARY INCONTINENCE [None]
  - CHOKING SENSATION [None]
  - DYSPNOEA [None]
  - DIZZINESS [None]
  - ABDOMINAL DISCOMFORT [None]
  - VISION BLURRED [None]
  - AGITATION [None]
